FAERS Safety Report 6097172-2 (Version None)
Quarter: 2009Q1

REPORT INFORMATION
  Report Type: 
  Country: None (occurrence: None)
  Receive Date: 20090225
  Receipt Date: 20090217
  Transmission Date: 20090719
  Serious: Yes (Hospitalization)
  Sender: FDA-Public Use
  Company Number: 2009-191740-NL

PATIENT
  Age: 22 Year
  Sex: Male

DRUGS (2)
  1. MIRTAZAPINE [Suspect]
     Dosage: DF
     Dates: start: 20060901
  2. CYAMEMAZINE [Suspect]
     Dosage: DF ORAL
     Route: 048
     Dates: start: 20060901, end: 20070601

REACTIONS (6)
  - BACK PAIN [None]
  - CHILLS [None]
  - GENERAL PHYSICAL HEALTH DETERIORATION [None]
  - PULMONARY EMBOLISM [None]
  - PYREXIA [None]
  - TACHYCARDIA [None]
